FAERS Safety Report 10215897 (Version 1)
Quarter: 2014Q2

REPORT INFORMATION
  Report Type: Spontaneous
  Country: GB (occurrence: None)
  Receive Date: 20140602
  Receipt Date: 20140602
  Transmission Date: 20141212
  Serious: Yes (Other)
  Sender: FDA-Public Use
  Company Number: DEP_02116_2014

PATIENT
  Age: 26 Year
  Sex: Male

DRUGS (2)
  1. GABAPENTIN [Suspect]
     Indication: INTENTIONAL PRODUCT MISUSE
  2. METHADONE (UNKNOWN) [Concomitant]

REACTIONS (3)
  - Dystonia [None]
  - Self-medication [None]
  - Intentional product misuse [None]
